FAERS Safety Report 5151920-4 (Version None)
Quarter: 2006Q4

REPORT INFORMATION
  Report Type: 
  Country: None (occurrence: None)
  Receive Date: 20061107
  Receipt Date: 20061031
  Transmission Date: 20070319
  Serious: Yes (Death)
  Sender: FDA-Public Use
  Company Number: 200610114BBE

PATIENT
  Age: 68 Year
  Sex: Female
  Weight: 69 kg

DRUGS (10)
  1. GAMUNEX [Suspect]
     Indication: NEUROPATHY
     Dosage: SEE IMAGE
     Route: 042
     Dates: start: 20060331
  2. GAMUNEX [Suspect]
     Indication: NEUROPATHY
     Dosage: SEE IMAGE
     Route: 042
     Dates: start: 20060331
  3. GAMUNEX [Suspect]
     Indication: NEUROPATHY
     Dosage: SEE IMAGE
     Route: 042
     Dates: start: 20060401
  4. GAMUNEX [Suspect]
     Indication: NEUROPATHY
     Dosage: SEE IMAGE
     Route: 042
     Dates: start: 20060401
  5. GAMUNEX [Suspect]
  6. ACETAMINOPHEN [Concomitant]
  7. STATEX [Concomitant]
  8. COLACE [Concomitant]
  9. NORFLEX [Concomitant]
  10. ATIVAN [Concomitant]

REACTIONS (7)
  - BODY TEMPERATURE INCREASED [None]
  - CHEST DISCOMFORT [None]
  - DYSPNOEA [None]
  - OXYGEN SATURATION DECREASED [None]
  - PNEUMONIA [None]
  - RESPIRATORY RATE INCREASED [None]
  - SEPTIC SHOCK [None]
